FAERS Safety Report 15097770 (Version 1)
Quarter: 2018Q2

REPORT INFORMATION
  Report Type: Spontaneous
  Country: US (occurrence: US)
  Receive Date: 20180611
  Receipt Date: 20180611
  Transmission Date: 20180711
  Serious: Yes (Life-Threatening, Hospitalization)
  Sender: FDA-Public Use
  Company Number: None

PATIENT
  Age: 59 Year
  Sex: Female
  Weight: 83.25 kg

DRUGS (1)
  1. PENNSAID [Suspect]
     Active Substance: DICLOFENAC SODIUM
     Indication: ARTHRITIS
     Dosage: ?          QUANTITY:2 PUMPS;?
     Route: 061
     Dates: start: 20171103, end: 20171104

REACTIONS (4)
  - Urinary bladder haemorrhage [None]
  - Menstrual disorder [None]
  - Petechiae [None]
  - Platelet count decreased [None]

NARRATIVE: CASE EVENT DATE: 20171103
